FAERS Safety Report 8270266-9 (Version None)
Quarter: 2012Q2

REPORT INFORMATION
  Report Type: 
  Country: None (occurrence: None)
  Receive Date: 20120410
  Receipt Date: 20120403
  Transmission Date: 20120825
  Serious: No
  Sender: FDA-Public Use
  Company Number: US-PFIZER INC-2012022239

PATIENT
  Sex: Female

DRUGS (7)
  1. LYRICA [Suspect]
     Indication: FIBROMYALGIA
  2. LYRICA [Suspect]
     Indication: HEADACHE
     Dosage: 150 MG, (DAILY)
     Route: 048
  3. FLEXERIL [Concomitant]
     Dosage: 10 MG, (I TAB AM+PM)
  4. LYRICA [Suspect]
     Indication: NEURALGIA
     Dosage: 150 MG, 2X/DAY
     Route: 048
     Dates: start: 20110101
  5. ZOLOFT [Concomitant]
     Dosage: 100 MG, (DAILY)
  6. VICODIN [Concomitant]
     Dosage: 5/500 MG, ((II TAB AM+PM))
  7. MOTRIN [Concomitant]
     Dosage: 800 MG, (AM+PM)

REACTIONS (4)
  - DRUG INTOLERANCE [None]
  - OEDEMA [None]
  - OEDEMA PERIPHERAL [None]
  - JOINT SWELLING [None]
